FAERS Safety Report 15348982 (Version 2)
Quarter: 2019Q1

REPORT INFORMATION
  Report Type: Spontaneous
  Country: US (occurrence: US)
  Receive Date: 20180904
  Receipt Date: 20190217
  Transmission Date: 20190417
  Serious: No
  Sender: FDA-Public Use
  Company Number: US-TEVA-2018-US-950769

PATIENT
  Age: 52 Year
  Sex: Female

DRUGS (1)
  1. TEVA CLONAZEPAM [Suspect]
     Active Substance: CLONAZEPAM
     Indication: PANIC DISORDER
     Route: 065
     Dates: start: 2011, end: 201806

REACTIONS (1)
  - Drug effect incomplete [Unknown]
